FAERS Safety Report 9004957 (Version 1)
Quarter: 2013Q1

REPORT INFORMATION
  Report Type: Spontaneous
  Country: FR (occurrence: FR)
  Receive Date: 20130109
  Receipt Date: 20130109
  Transmission Date: 20140127
  Serious: Yes (Hospitalization)
  Sender: FDA-Public Use
  Company Number: FR-MERCK-1301FRA001333

PATIENT
  Age: 79 Year
  Sex: Female

DRUGS (2)
  1. FORTZAAR 100 MG/25 MG, COMPRIM? PELLICUL? [Suspect]
     Indication: HYPERTENSION
     Dosage: UNK
     Route: 048
     Dates: end: 20121103
  2. FRAXIPARINE [Suspect]
     Dosage: UNK
     Route: 058
     Dates: start: 20121018, end: 20121103

REACTIONS (1)
  - Pulmonary embolism [Recovered/Resolved]
